FAERS Safety Report 4368617-0 (Version None)
Quarter: 2004Q2

REPORT INFORMATION
  Report Type: 
  Country: None (occurrence: None)
  Receive Date: 20040528
  Receipt Date: 20040414
  Transmission Date: 20050107
  Serious: Yes (Other)
  Sender: FDA-Public Use
  Company Number: 236370

PATIENT
  Age: 48 Year
  Sex: Female
  Weight: 46 kg

DRUGS (2)
  1. ACTRAPID PENFILL HM(GE) NN729(INSULIN HUMAN) SOLUTION FOR INJECTION, 1 [Suspect]
     Dosage: 30 IU, QD, SUBCUTANEOUS
     Route: 058
     Dates: start: 20030528, end: 20031114
  2. INSULATARD (INSULIN HUMAN INJECTION, ISOPHANE) SUSPENSION FOR INJECTIN [Concomitant]

REACTIONS (4)
  - HEPATIC STEATOSIS [None]
  - HEPATITIS [None]
  - HEPATOMEGALY [None]
  - HYPOGLYCAEMIA [None]
